FAERS Safety Report 15321165 (Version 1)
Quarter: 2018Q3

REPORT INFORMATION
  Report Type: Spontaneous
  Country: US (occurrence: US)
  Receive Date: 20180821
  Receipt Date: 20180821
  Transmission Date: 20181010
  Serious: Yes (Other)
  Sender: FDA-Public Use
  Company Number: None

PATIENT
  Age: 50 Year
  Sex: Female
  Weight: 94.5 kg

DRUGS (15)
  1. ASEA CRANBERRY W VITAMIN C [Concomitant]
  2. CONTRAVE [Suspect]
     Active Substance: BUPROPION HYDROCHLORIDE\NALTREXONE HYDROCHLORIDE
     Indication: WEIGHT CONTROL
     Route: 048
     Dates: start: 20180613, end: 20180814
  3. CONTRAVE [Concomitant]
     Active Substance: BUPROPION HYDROCHLORIDE\NALTREXONE HYDROCHLORIDE
  4. AMITRIPTYLINE [Concomitant]
     Active Substance: AMITRIPTYLINE
  5. PANTOPRAZOLE SOD [Concomitant]
     Active Substance: PANTOPRAZOLE SODIUM
  6. CONTRAVE [Suspect]
     Active Substance: BUPROPION HYDROCHLORIDE\NALTREXONE HYDROCHLORIDE
     Indication: FOOD CRAVING
     Route: 048
     Dates: start: 20180613, end: 20180814
  7. ESTRADIOL. [Concomitant]
     Active Substance: ESTRADIOL
  8. CYCLOBENZAPRINE. [Concomitant]
     Active Substance: CYCLOBENZAPRINE
  9. NAPROXEN. [Concomitant]
     Active Substance: NAPROXEN
  10. CINNAMON. [Concomitant]
     Active Substance: CINNAMON
  11. CONTRAVE [Suspect]
     Active Substance: BUPROPION HYDROCHLORIDE\NALTREXONE HYDROCHLORIDE
     Indication: SMOKING CESSATION THERAPY
     Route: 048
     Dates: start: 20180613, end: 20180814
  12. CONTRAVE [Concomitant]
     Active Substance: BUPROPION HYDROCHLORIDE\NALTREXONE HYDROCHLORIDE
  13. TRAMADOL. [Concomitant]
     Active Substance: TRAMADOL
  14. MELATONIN [Concomitant]
     Active Substance: MELATONIN
  15. MULTI VITAMIN FOR WOMEN OVER 50 [Concomitant]

REACTIONS (10)
  - Hiatus hernia [None]
  - Headache [None]
  - Hallucination [None]
  - Weight increased [None]
  - Food craving [None]
  - Nausea [None]
  - Drug ineffective [None]
  - Condition aggravated [None]
  - Vomiting [None]
  - Gastrooesophageal reflux disease [None]

NARRATIVE: CASE EVENT DATE: 20180618
